FAERS Safety Report 7867023-1 (Version None)
Quarter: 2011Q4

REPORT INFORMATION
  Report Type: 
  Country: None (occurrence: None)
  Receive Date: 20111028
  Receipt Date: 20110929
  Transmission Date: 20120403
  Serious: Yes (Other)
  Sender: FDA-Public Use
  Company Number: CA-ROCHE-GNE298037

PATIENT
  Sex: Female

DRUGS (10)
  1. XOLAIR [Suspect]
     Dosage: 375 MG, Q2W
     Dates: start: 20091126
  2. SYMBICORT [Concomitant]
     Indication: PRODUCT USED FOR UNKNOWN INDICATION
  3. PREDNISONE [Concomitant]
     Indication: PRODUCT USED FOR UNKNOWN INDICATION
  4. XOLAIR [Suspect]
     Indication: ASTHMA
     Dosage: 375 MG, Q2W
     Route: 058
     Dates: start: 20090403
  5. XOLAIR [Suspect]
     Dosage: 375 MG, Q2W
     Route: 058
     Dates: start: 20090928
  6. XOLAIR [Suspect]
     Dosage: 375 MG, Q2W
     Route: 058
     Dates: start: 20091112
  7. VENTOLIN [Concomitant]
  8. XOLAIR [Suspect]
     Dosage: 375 MG, Q2W
     Dates: start: 20100204
  9. CORTISONE ACETATE [Concomitant]
     Indication: PRODUCT USED FOR UNKNOWN INDICATION
  10. VENTOLIN [Concomitant]
     Indication: PRODUCT USED FOR UNKNOWN INDICATION

REACTIONS (9)
  - ASTHMA [None]
  - WEIGHT DECREASED [None]
  - HYPERSENSITIVITY [None]
  - RHINORRHOEA [None]
  - INFLUENZA [None]
  - NASOPHARYNGITIS [None]
  - BLOOD PRESSURE DECREASED [None]
  - COUGH [None]
  - NASAL CONGESTION [None]
